FAERS Safety Report 5765138-5 (Version None)
Quarter: 2008Q2

REPORT INFORMATION
  Report Type: 
  Country: None (occurrence: None)
  Receive Date: 20080611
  Receipt Date: 20080530
  Transmission Date: 20081010
  Serious: Yes (Other)
  Sender: FDA-Public Use
  Company Number: GB-TEVA-172295ISR

PATIENT
  Age: 60 Year
  Sex: Female

DRUGS (2)
  1. FINASTERIDE [Suspect]
     Indication: ALOPECIA
     Route: 048
  2. FINASTERIDE [Suspect]
     Indication: BLOOD TESTOSTERONE INCREASED

REACTIONS (4)
  - ENDOMETRIAL HYPERTROPHY [None]
  - MENORRHAGIA [None]
  - MENSTRUATION IRREGULAR [None]
  - UTERINE CERVIX STENOSIS [None]
